FAERS Safety Report 8810431 (Version 1)
Quarter: 2012Q4

REPORT INFORMATION
  Report Type: 
  Country: BR (occurrence: BR)
  Receive Date: 20120927
  Receipt Date: 20120927
  Transmission Date: 20130627
  Serious: Yes (Other)
  Sender: FDA-Public Use
  Company Number: BR-AMGEN-BRASP2012049037

PATIENT
  Age: 63 Year
  Sex: Female
  Weight: 102 kg

DRUGS (4)
  1. ENBREL [Suspect]
     Indication: RHEUMATOID ARTHRITIS
     Dosage: 50 mg, 1x/week
     Route: 058
     Dates: start: 20120724
  2. PREDNISONE [Suspect]
     Dosage: 2 tablets daily
     Dates: start: 20060323
  3. PURAN T4 [Concomitant]
     Dosage: UNK
  4. OMEPRAZOL                          /00661201/ [Concomitant]
     Dosage: UNK

REACTIONS (5)
  - Rheumatic disorder [Recovered/Resolved]
  - Swelling [Unknown]
  - Weight increased [Unknown]
  - Wrong technique in drug usage process [Unknown]
  - Injection site pain [Not Recovered/Not Resolved]
